FAERS Safety Report 19062286 (Version 1)
Quarter: 2021Q1

REPORT INFORMATION
  Report Type: Spontaneous
  Country: US (occurrence: US)
  Receive Date: 20210325
  Receipt Date: 20210325
  Transmission Date: 20210420
  Serious: Yes (Disabling)
  Sender: FDA-Public Use
  Company Number: None

PATIENT
  Age: 39 Year
  Sex: Male
  Weight: 75.6 kg

DRUGS (4)
  1. CENTRUM MULTIGUMMIES FOR MEN [Concomitant]
  2. WALGREENS ESSENTIALS MAGNESIUM [Concomitant]
  3. DIVINE BOUNTY VITAMIN B COMPLEX [Concomitant]
  4. DURISAN HAND SANITIZER [Suspect]
     Active Substance: BENZALKONIUM CHLORIDE
     Indication: COVID-19 PROPHYLAXIS
     Dosage: ?          QUANTITY:6 SPRAY(S);?
     Route: 061

REACTIONS (3)
  - Recalled product administered [None]
  - Skin irritation [None]
  - Rash [None]

NARRATIVE: CASE EVENT DATE: 20210212
